FAERS Safety Report 25823216 (Version 4)
Quarter: 2025Q4

REPORT INFORMATION
  Report Type: Report from Study
  Country: US (occurrence: US)
  Receive Date: 20250919
  Receipt Date: 20251022
  Transmission Date: 20260117
  Serious: Yes (Other)
  Sender: ACADIA PHARMACEUTICALS
  Company Number: US-ACADIA PHARMACEUTICALS INC.-ACA-2025-PIM-010336

PATIENT
  Sex: Male

DRUGS (11)
  1. NUPLAZID [Suspect]
     Active Substance: PIMAVANSERIN TARTRATE
     Indication: Parkinson^s disease psychosis
     Dosage: 34 MILLIGRAM, QD AT BEDTIME
     Route: 048
     Dates: start: 20250819
  2. LIPITOR [Concomitant]
     Active Substance: ATORVASTATIN CALCIUM
  3. LANTUS [Concomitant]
     Active Substance: INSULIN GLARGINE
  4. FINASTERIDE [Concomitant]
     Active Substance: FINASTERIDE
  5. LEVOTHYROXINE SODIUM [Concomitant]
     Active Substance: LEVOTHYROXINE SODIUM
  6. TAMSULOSIN HYDROCHLORIDE [Concomitant]
     Active Substance: TAMSULOSIN HYDROCHLORIDE
  7. AMANTADINE [Concomitant]
     Active Substance: AMANTADINE
  8. ACARBOSE [Concomitant]
     Active Substance: ACARBOSE
  9. ACTOS [Concomitant]
     Active Substance: PIOGLITAZONE HYDROCHLORIDE
  10. RYTARY [Concomitant]
     Active Substance: CARBIDOPA\LEVODOPA
  11. RAMIPRIL [Concomitant]
     Active Substance: RAMIPRIL

REACTIONS (5)
  - Hallucination, visual [Recovering/Resolving]
  - Disorientation [Not Recovered/Not Resolved]
  - Adverse drug reaction [Unknown]
  - Constipation [Unknown]
  - Confusional state [Not Recovered/Not Resolved]
